FAERS Safety Report 20220315 (Version 1)
Quarter: 2021Q4

REPORT INFORMATION
  Report Type: Report from Study
  Country: IL (occurrence: IL)
  Receive Date: 20211223
  Receipt Date: 20211223
  Transmission Date: 20220303
  Serious: Yes (Hospitalization)
  Sender: FDA-Public Use
  Company Number: IL-ABBVIE-21K-082-4207626-00

PATIENT
  Age: 68 Year
  Sex: Female

DRUGS (3)
  1. CARBIDOPA\LEVODOPA [Suspect]
     Active Substance: CARBIDOPA\LEVODOPA
     Indication: Parkinson^s disease
     Dosage: MORNING DOSAGE (ML) 12.0, CONTINUOUS DOSAGE (ML/H) 3.0, EXTRA DOSAGE (ML) 1.5
     Route: 050
     Dates: start: 20190219
  2. CARBIDOPA\LEVODOPA [Suspect]
     Active Substance: CARBIDOPA\LEVODOPA
     Dosage: MORNING DOSAGE (ML) 12.0, CONTINUOUS DOSAGE (ML/H) 3.8, EXTRA DOSAGE (ML) 1.5
     Route: 050
  3. CARBIDOPA\LEVODOPA [Suspect]
     Active Substance: CARBIDOPA\LEVODOPA
     Dosage: MORNING DOSAGE (ML) 12.0, CONTINUOUS DOSAGE (ML/H) 4.0, EXTRA DOSAGE (ML) 1.5
     Route: 050

REACTIONS (2)
  - Tremor [Recovered/Resolved]
  - Drug ineffective [Recovered/Resolved]

NARRATIVE: CASE EVENT DATE: 20211217
